FAERS Safety Report 7417421-5 (Version None)
Quarter: 2011Q2

REPORT INFORMATION
  Report Type: 
  Country: None (occurrence: None)
  Receive Date: 20110412
  Receipt Date: 20110412
  Transmission Date: 20111010
  Serious: Yes (Other)
  Sender: FDA-Public Use
  Company Number: None

PATIENT
  Sex: Female
  Weight: 72.5755 kg

DRUGS (1)
  1. EVISTA [Suspect]
     Indication: POST PROCEDURAL COMPLICATION
     Dosage: 1 PER DAY
     Dates: start: 20090926, end: 20100722

REACTIONS (1)
  - ALOPECIA [None]
